FAERS Safety Report 20574588 (Version 1)
Quarter: 2022Q1

REPORT INFORMATION
  Report Type: Report from Study
  Country: CA (occurrence: CA)
  Receive Date: 20220309
  Receipt Date: 20220309
  Transmission Date: 20220423
  Serious: Yes (Hospitalization, Other)
  Sender: FDA-Public Use
  Company Number: CA-ABBVIE-22K-028-4307726-00

PATIENT
  Age: 60 Year
  Sex: Male

DRUGS (1)
  1. SKYRIZI [Suspect]
     Active Substance: RISANKIZUMAB-RZAA
     Indication: Psoriasis
     Route: 058
     Dates: start: 20200306

REACTIONS (14)
  - Furuncle [Recovered/Resolved]
  - Suicidal ideation [Unknown]
  - Diabetes mellitus [Unknown]
  - Pain in extremity [Unknown]
  - Energy increased [Unknown]
  - Mood altered [Unknown]
  - Skin exfoliation [Unknown]
  - Erythema [Unknown]
  - Furuncle [Unknown]
  - Musculoskeletal disorder [Unknown]
  - Seborrhoea [Unknown]
  - Mobility decreased [Unknown]
  - Gait inability [Unknown]
  - Vein disorder [Unknown]

NARRATIVE: CASE EVENT DATE: 20220201
